FAERS Safety Report 7218464-7 (Version None)
Quarter: 2011Q1

REPORT INFORMATION
  Report Type: 
  Country: None (occurrence: None)
  Receive Date: 20110110
  Receipt Date: 20110103
  Transmission Date: 20110831
  Serious: Yes (Other)
  Sender: FDA-Public Use
  Company Number: US-PFIZER INC-2010105522

PATIENT
  Sex: Female
  Weight: 117 kg

DRUGS (17)
  1. NEXIUM [Concomitant]
     Dosage: 20 MG, DAILY
     Route: 048
  2. MONTELUKAST [Concomitant]
     Dosage: 10 MG, DAILY
     Route: 048
  3. FLOVENT [Concomitant]
     Dosage: UNK
  4. LITHIUM CARBONATE [Concomitant]
     Dosage: UNK
  5. ACIDOPHILUS [Concomitant]
     Dosage: UNK
     Route: 048
  6. NEURONTIN [Suspect]
     Dosage: 300 MG, 2X/DAY
     Route: 048
  7. DIFLUCAN [Concomitant]
     Dosage: UNK
     Route: 048
  8. ATROVENT [Concomitant]
     Dosage: UNK
  9. EFFEXOR XR [Suspect]
     Dosage: 225 MG, 1X/DAY
     Route: 048
  10. SEROQUEL [Suspect]
     Dosage: UNK
  11. LEVOTHYROXINE [Concomitant]
     Dosage: UNK
     Route: 048
  12. BUSPAR [Concomitant]
     Dosage: 10 MG, 2X/DAY
     Route: 048
  13. ATIVAN [Concomitant]
     Dosage: UNK
     Route: 048
  14. NEURONTIN [Suspect]
     Indication: SCIATICA
     Dosage: 2400 MG, UNK
     Route: 048
     Dates: start: 20090101
  15. NEURONTIN [Suspect]
     Indication: NEUROPATHY PERIPHERAL
     Dosage: 1800 MG, UNK
     Route: 048
  16. ABILIFY [Concomitant]
     Dosage: 5 MG, DAILY
     Route: 048
  17. TRIAMCINOLONE ACETONIDE W/NYSTATIN [Concomitant]
     Dosage: UNK
     Route: 048

REACTIONS (12)
  - FEAR [None]
  - FEELING ABNORMAL [None]
  - WEIGHT INCREASED [None]
  - ANXIETY [None]
  - WHITE BLOOD CELL COUNT INCREASED [None]
  - TACHYPHRENIA [None]
  - GLUCOSE TOLERANCE IMPAIRED [None]
  - PARANOIA [None]
  - AGORAPHOBIA [None]
  - EMOTIONAL DISORDER [None]
  - MALAISE [None]
  - SELF INJURIOUS BEHAVIOUR [None]
